FAERS Safety Report 6362980-7 (Version None)
Quarter: 2009Q3

REPORT INFORMATION
  Report Type: 
  Country: None (occurrence: None)
  Receive Date: 20090919
  Receipt Date: 20090625
  Transmission Date: 20100115
  Serious: No
  Sender: FDA-Public Use
  Company Number: US-ABBOTT-09P-163-0580990-00

PATIENT

DRUGS (10)
  1. HUMIRA [Suspect]
     Indication: CROHN'S DISEASE
     Dates: start: 20090612
  2. ASACOL [Concomitant]
     Indication: CROHN'S DISEASE
  3. PREDNISONE [Concomitant]
     Indication: CROHN'S DISEASE
     Dates: end: 20090628
  4. PREDNISONE [Concomitant]
     Indication: COLITIS
     Dates: start: 20090629
  5. LEBRAX [Concomitant]
     Indication: DRUG USE FOR UNKNOWN INDICATION
  6. LAMOTIL [Concomitant]
     Indication: CROHN'S DISEASE
  7. PERCOCET [Concomitant]
     Indication: BACK PAIN
     Dosage: 10/325 MG PER TAB: 2 TABS Q 4 HRS
  8. ALBUTEROL [Concomitant]
     Indication: SLEEP APNOEA SYNDROME
     Dosage: INHALER
  9. ALBUTEROL [Concomitant]
     Dosage: NEBULIZER
  10. SYMBICORT [Concomitant]
     Indication: SLEEP APNOEA SYNDROME
     Dosage: INHALER

REACTIONS (4)
  - BACK PAIN [None]
  - CHEST DISCOMFORT [None]
  - DYSGEUSIA [None]
  - DYSPNOEA [None]
